FAERS Safety Report 24437002 (Version 2)
Quarter: 2024Q4

REPORT INFORMATION
  Report Type: Spontaneous
  Country: JP (occurrence: JP)
  Receive Date: 20241015
  Receipt Date: 20241021
  Transmission Date: 20250114
  Serious: Yes (Other)
  Sender: ACCORD
  Company Number: JP-Accord-450877

PATIENT
  Age: 70 Year
  Sex: Male

DRUGS (4)
  1. CARBOPLATIN [Suspect]
     Active Substance: CARBOPLATIN
     Indication: Teratoma
     Dosage: CARE PROTOCOL, INCORPORATING CARBOPLATIN AT A DOSAGE OF 450 MG/M2 AND ETOPOSIDE AT 150 MG/M2.
  2. ETOPOSIDE [Suspect]
     Active Substance: ETOPOSIDE
     Indication: Teratoma
     Dosage: CARE PROTOCOL, INCORPORATING CARBOPLATIN AT A DOSAGE OF 450 MG/M2 AND ETOPOSIDE AT 150 MG/M2.
  3. CARBOPLATIN [Suspect]
     Active Substance: CARBOPLATIN
     Indication: Teratoma
     Dosage: CARE PROTOCOL, INCORPORATING CARBOPLATIN AT A DOSAGE OF 450 MG/M2 AND ETOPOSIDE AT 150 MG/M2.
  4. ETOPOSIDE [Suspect]
     Active Substance: ETOPOSIDE
     Indication: Teratoma
     Dosage: CARE PROTOCOL, INCORPORATING CARBOPLATIN AT A DOSAGE OF 450 MG/M2 AND ETOPOSIDE AT 150 MG/M2.

REACTIONS (1)
  - Pancytopenia [Unknown]
